FAERS Safety Report 20589779 (Version 1)
Quarter: 2022Q1

REPORT INFORMATION
  Report Type: Spontaneous
  Country: US (occurrence: US)
  Receive Date: 20220314
  Receipt Date: 20220314
  Transmission Date: 20220423
  Serious: No
  Sender: FDA-Public Use
  Company Number: US-GLENMARK PHARMACEUTICALS-2021GMK067045

PATIENT

DRUGS (3)
  1. MUPIROCIN [Suspect]
     Active Substance: MUPIROCIN
     Indication: Wound
     Dosage: UNK, BID
     Route: 061
     Dates: end: 20210729
  2. MUPIROCIN [Suspect]
     Active Substance: MUPIROCIN
     Indication: Rash
  3. MUPIROCIN [Suspect]
     Active Substance: MUPIROCIN
     Indication: Skin depigmentation

REACTIONS (6)
  - Application site exfoliation [Unknown]
  - Condition aggravated [Unknown]
  - Product use issue [Unknown]
  - Drug effective for unapproved indication [Unknown]
  - Application site pain [Recovered/Resolved]
  - Application site erythema [Unknown]

NARRATIVE: CASE EVENT DATE: 20210701
